FAERS Safety Report 9058430 (Version 3)
Quarter: 2018Q4

REPORT INFORMATION
  Report Type: Spontaneous
  Country: NO (occurrence: NO)
  Receive Date: 20130211
  Receipt Date: 20181019
  Transmission Date: 20190205
  Serious: Yes (Other)
  Sender: FDA-Public Use
  Company Number: NO-ELI_LILLY_AND_COMPANY-NO201302000524

PATIENT
  Sex: Female

DRUGS (1)
  1. ZYPREXA [Suspect]
     Active Substance: OLANZAPINE
     Indication: PRODUCT USED FOR UNKNOWN INDICATION
     Dosage: UNK, DAILY
     Route: 065
     Dates: start: 1999, end: 2006

REACTIONS (5)
  - Weight increased [Unknown]
  - Psychotic disorder [Unknown]
  - Psoriasis [Unknown]
  - Dry mouth [Unknown]
  - Tooth loss [Unknown]
